FAERS Safety Report 16625805 (Version 1)
Quarter: 2019Q3

REPORT INFORMATION
  Report Type: Spontaneous
  Country: US (occurrence: US)
  Receive Date: 20190724
  Receipt Date: 20190724
  Transmission Date: 20191004
  Serious: No
  Sender: FDA-Public Use
  Company Number: US-APOTEX-2019AP017834

PATIENT
  Age: 15 Year
  Sex: Female

DRUGS (9)
  1. SERTRALINE [Suspect]
     Active Substance: SERTRALINE HYDROCHLORIDE
     Indication: ANXIETY DISORDER
     Dosage: UNK
     Route: 065
  2. METHYL FOLATE [Suspect]
     Active Substance: LEVOMEFOLATE CALCIUM
     Indication: MAJOR DEPRESSION
     Dosage: 7.5 MG, UNK, DAILY
     Route: 065
  3. METHYL FOLATE [Suspect]
     Active Substance: LEVOMEFOLATE CALCIUM
     Indication: ANXIETY DISORDER
     Dosage: 3.75 MG, UNK, DAILY
     Route: 065
  4. ARIPIPRAZOLE. [Concomitant]
     Active Substance: ARIPIPRAZOLE
     Indication: POST-TRAUMATIC STRESS DISORDER
  5. ARIPIPRAZOLE. [Concomitant]
     Active Substance: ARIPIPRAZOLE
     Indication: MAJOR DEPRESSION
  6. SERTRALINE [Suspect]
     Active Substance: SERTRALINE HYDROCHLORIDE
     Indication: POST-TRAUMATIC STRESS DISORDER
  7. METHYL FOLATE [Suspect]
     Active Substance: LEVOMEFOLATE CALCIUM
     Indication: POST-TRAUMATIC STRESS DISORDER
  8. ARIPIPRAZOLE. [Concomitant]
     Active Substance: ARIPIPRAZOLE
     Indication: ANXIETY DISORDER
     Dosage: 10 MG, UNK (10 MG/DAY)
     Route: 065
  9. SERTRALINE [Suspect]
     Active Substance: SERTRALINE HYDROCHLORIDE
     Indication: MAJOR DEPRESSION
     Dosage: 200 MG/DAY
     Route: 065

REACTIONS (2)
  - Feeling jittery [Recovered/Resolved]
  - Anxiety [Recovered/Resolved]
